FAERS Safety Report 4425174-8 (Version None)
Quarter: 2004Q3

REPORT INFORMATION
  Report Type: 
  Country: None (occurrence: None)
  Receive Date: 20040813
  Receipt Date: 20040804
  Transmission Date: 20050211
  Serious: Yes (Hospitalization)
  Sender: FDA-Public Use
  Company Number: FR-JNJFOC-20040300005

PATIENT
  Sex: Female

DRUGS (13)
  1. ACETAMINOPHEN AND TRAMADOL HCL [Suspect]
     Indication: DRUG USE FOR UNKNOWN INDICATION
     Route: 049
  2. LASIX [Suspect]
     Indication: DRUG USE FOR UNKNOWN INDICATION
     Route: 049
  3. SECTRAL [Concomitant]
  4. PRAVASTATIN [Concomitant]
     Route: 049
  5. VASTAREL [Concomitant]
     Route: 049
  6. LEXOMIL [Concomitant]
     Route: 049
  7. ASPIRIN [Concomitant]
  8. AMLOR [Concomitant]
     Route: 049
  9. MYOLASTAN [Concomitant]
     Route: 049
  10. LAMALINE [Concomitant]
  11. LAMALINE [Concomitant]
  12. LAMALINE [Concomitant]
  13. LAMALINE [Concomitant]

REACTIONS (3)
  - BONE MARROW DEPRESSION [None]
  - DRUG INTERACTION [None]
  - DYSPNOEA [None]
